FAERS Safety Report 5492010-0 (Version None)
Quarter: 2007Q4

REPORT INFORMATION
  Report Type: 
  Country: None (occurrence: None)
  Receive Date: 20071022
  Receipt Date: 20071009
  Transmission Date: 20080405
  Serious: Yes (Other)
  Sender: FDA-Public Use
  Company Number: B0491947A

PATIENT
  Age: 78 Year
  Sex: Female

DRUGS (1)
  1. LAMICTAL [Suspect]
     Dosage: 25MG TWICE PER DAY
     Route: 048
     Dates: start: 20070401, end: 20071009

REACTIONS (3)
  - DYSPNOEA [None]
  - HYPOXIA [None]
  - LUNG NEOPLASM [None]
